FAERS Safety Report 4778633-2 (Version None)
Quarter: 2005Q3

REPORT INFORMATION
  Report Type: 
  Country: None (occurrence: None)
  Receive Date: 20050922
  Receipt Date: 20050908
  Transmission Date: 20060218
  Serious: Yes (Hospitalization, Other)
  Sender: FDA-Public Use
  Company Number: SE-2005-019057

PATIENT
  Age: 75 Year
  Sex: Male

DRUGS (4)
  1. SOTALOL HCL [Suspect]
     Indication: ATRIAL FIBRILLATION
     Dosage: 160, 1 DOSE, ORAL
     Route: 048
     Dates: start: 20050611, end: 20050611
  2. RENITEC /NET/ (ENALAPRIL) [Concomitant]
  3. ASPIRIN [Concomitant]
  4. ALFADIL (DOXAZOSIN MESILATE) [Concomitant]

REACTIONS (7)
  - BRADYCARDIA [None]
  - FAECAL INCONTINENCE [None]
  - NAUSEA [None]
  - SOMNOLENCE [None]
  - SPEECH DISORDER [None]
  - SYNCOPE [None]
  - VOMITING [None]
